FAERS Safety Report 10192683 (Version 1)
Quarter: 2014Q2

REPORT INFORMATION
  Report Type: Spontaneous
  Country: US (occurrence: US)
  Receive Date: 20140523
  Receipt Date: 20140523
  Transmission Date: 20141212
  Serious: No
  Sender: FDA-Public Use
  Company Number: US-ASTRAZENECA-2013SE78146

PATIENT
  Age: 666 Month
  Sex: Male
  Weight: 111.1 kg

DRUGS (14)
  1. PULMICORT FLEXHALER [Suspect]
     Indication: ASTHMA
     Route: 055
     Dates: start: 201306
  2. MORPHINE SULFATE ER [Suspect]
     Indication: COUGH
     Route: 048
  3. OMEPRAZOLE [Suspect]
     Indication: GASTROOESOPHAGEAL REFLUX DISEASE
     Route: 048
  4. PAXIL [Concomitant]
     Indication: DEPRESSION
     Route: 048
     Dates: start: 201307
  5. COZAAR [Concomitant]
     Indication: BLOOD PRESSURE
     Route: 048
     Dates: start: 2010
  6. CARDIZEM CD [Concomitant]
     Indication: BLOOD PRESSURE
     Route: 048
  7. KLONOPIN [Concomitant]
     Indication: TREMOR
     Route: 048
     Dates: start: 2011
  8. GABAPENTIN [Concomitant]
     Indication: NEUROPATHY PERIPHERAL
     Route: 048
     Dates: start: 2011
  9. TRAMADOL HCL [Concomitant]
     Indication: PROCEDURAL PAIN
     Route: 048
     Dates: start: 2011
  10. ZOMETA [Concomitant]
     Indication: BLOOD CALCIUM
     Route: 042
  11. DEXAMETHASONE [Concomitant]
     Route: 042
  12. XOPENEX [Concomitant]
     Indication: SLEEP DISORDER
     Dosage: 25 MCG DAILY
     Route: 048
     Dates: start: 2012
  13. VENTOLIN HFA [Concomitant]
     Indication: ASTHMA
     Dosage: 2 PRN
     Route: 055
  14. XANEX [Concomitant]
     Indication: SLEEP DISORDER
     Dosage: 2 TABS DAILY
     Route: 048
     Dates: start: 2011

REACTIONS (2)
  - Asthma [Not Recovered/Not Resolved]
  - Intentional product misuse [Recovered/Resolved]
